FAERS Safety Report 4421552-1 (Version None)
Quarter: 2004Q3

REPORT INFORMATION
  Report Type: 
  Country: None (occurrence: None)
  Receive Date: 20040804
  Receipt Date: 20030909
  Transmission Date: 20050211
  Serious: Yes (Hospitalization)
  Sender: FDA-Public Use
  Company Number: WAES 0309USA01411

PATIENT
  Age: 66 Year
  Sex: Female

DRUGS (7)
  1. ZOCOR [Suspect]
     Indication: HYPERLIPIDAEMIA
     Dosage: 5 MG/DAILY PO
     Route: 048
     Dates: start: 19920613, end: 20001017
  2. ASPIRIN [Concomitant]
  3. BISOPROLOL FUMARATE [Concomitant]
  4. GLYBURIDE [Concomitant]
  5. NATEGLINIDE [Concomitant]
  6. NICORANDIL [Concomitant]
  7. NIFEDIPINE [Concomitant]

REACTIONS (1)
  - ATRIAL FIBRILLATION [None]
